FAERS Safety Report 12716247 (Version 2)
Quarter: 2016Q3

REPORT INFORMATION
  Report Type: Report from Study
  Country: MX (occurrence: MX)
  Receive Date: 20160906
  Receipt Date: 20160919
  Transmission Date: 20161109
  Serious: No
  Sender: FDA-Public Use
  Company Number: PHHY2016MX120312

PATIENT
  Sex: Female
  Weight: 58 kg

DRUGS (3)
  1. CARBAMAZEPINE. [Concomitant]
     Active Substance: CARBAMAZEPINE
     Indication: TRIGEMINAL NEURALGIA
     Dosage: 1 DF(400MG) QD
     Route: 048
  2. EXFORGE HCT [Suspect]
     Active Substance: AMLODIPINE BESYLATE\HYDROCHLOROTHIAZIDE\VALSARTAN
     Indication: HYPERTENSION
     Dosage: 3 DF(AMLODIPINE 5 MG, HYDROCHLOROTHIAZIDE UNK, VALSARTAN UNK) QD
     Route: 048
     Dates: start: 2011
  3. EXFORGE HCT [Suspect]
     Active Substance: AMLODIPINE BESYLATE\HYDROCHLOROTHIAZIDE\VALSARTAN
     Dosage: 1 DF(AMLODIPINE 5 MG, HYDROCHLOROTHIAZIDE UNK, VALSARTAN UNK), QD
     Route: 048
     Dates: start: 20160831

REACTIONS (5)
  - Drug prescribing error [Not Recovered/Not Resolved]
  - Diplopia [Not Recovered/Not Resolved]
  - Movement disorder [Not Recovered/Not Resolved]
  - Ataxia [Not Recovered/Not Resolved]
  - Excessive eye blinking [Not Recovered/Not Resolved]

NARRATIVE: CASE EVENT DATE: 2011
